FAERS Safety Report 9170852 (Version 2)
Quarter: 2013Q2

REPORT INFORMATION
  Report Type: Spontaneous
  Country: US (occurrence: US)
  Receive Date: 20130319
  Receipt Date: 20130418
  Transmission Date: 20140414
  Serious: No
  Sender: FDA-Public Use
  Company Number: US-PFIZER INC-2013086353

PATIENT
  Age: 50 Year
  Sex: Female

DRUGS (3)
  1. XELJANZ [Suspect]
     Indication: RHEUMATOID ARTHRITIS
     Dosage: 5 MG, 2X/DAY
     Route: 048
     Dates: start: 20130308
  2. CYMBALTA [Concomitant]
     Dosage: 30 MG, UNK
  3. NAPROSYN [Concomitant]
     Dosage: 500 MG, UNK

REACTIONS (2)
  - Fatigue [Unknown]
  - Upper respiratory tract infection [Unknown]
